FAERS Safety Report 4820529-1 (Version None)
Quarter: 2005Q4

REPORT INFORMATION
  Report Type: 
  Country: None (occurrence: None)
  Receive Date: 20051104
  Receipt Date: 20051101
  Transmission Date: 20060501
  Serious: Yes (Death)
  Sender: FDA-Public Use
  Company Number: PHFR2005GB03610

PATIENT
  Age: 49 Year
  Sex: Female

DRUGS (2)
  1. PHENOBARBITAL [Concomitant]
     Indication: EPILEPSY
     Route: 065
  2. TRILEPTAL [Suspect]
     Indication: EPILEPSY
     Route: 065

REACTIONS (1)
  - SUDDEN DEATH [None]
